FAERS Safety Report 22181831 (Version 1)
Quarter: 2023Q2

REPORT INFORMATION
  Report Type: Spontaneous
  Country: PH (occurrence: PH)
  Receive Date: 20230406
  Receipt Date: 20230406
  Transmission Date: 20230721
  Serious: Yes (Other)
  Sender: FDA-Public Use
  Company Number: PH-PFIZER INC-PV202300061082

PATIENT
  Age: 77 Year
  Sex: Female
  Weight: 86 kg

DRUGS (8)
  1. ALDACTONE [Suspect]
     Active Substance: SPIRONOLACTONE
     Indication: Blood pressure management
     Dosage: 25 MG, 1X/DAY EVERY 2PM
     Route: 048
     Dates: start: 20221023, end: 20221126
  2. EXFORGE [Concomitant]
     Active Substance: AMLODIPINE BESYLATE\VALSARTAN
     Indication: Hypertension
     Dosage: 1X/DAY AFTER BREAKFAST
     Route: 048
  3. SIMVASTATIN [Concomitant]
     Active Substance: SIMVASTATIN
     Dosage: 20 MG, 1X/DAY AT BEDTIME
  4. CLONIGEN [Concomitant]
     Indication: Blood pressure systolic
     Dosage: 75 UG AS NEEDED FOR SYSTOLIC BP OF 160 MMHG
  5. RITEMED TRIMETAZIDIN [Concomitant]
     Dosage: 35 MG, 1X/DAY
  6. CLOPIDOGREL [Concomitant]
     Active Substance: CLOPIDOGREL BISULFATE
     Dosage: 75 MG, 1X/DAY
  7. BIOGESIC [PARACETAMOL] [Concomitant]
     Indication: Headache
     Dosage: 500 MG (1 TABLET EVERY 4 HOURS)
  8. TRAMADOL HYDROCHLORIDE [Concomitant]
     Active Substance: TRAMADOL HYDROCHLORIDE
     Indication: Headache
     Dosage: 50 MG

REACTIONS (11)
  - Aortic arteriosclerosis [Unknown]
  - Aortic disorder [Unknown]
  - Blood potassium increased [Unknown]
  - Blood uric acid increased [Unknown]
  - Blood glucose increased [Unknown]
  - High density lipoprotein decreased [Unknown]
  - Glucose urine present [Unknown]
  - Spinal osteoarthritis [Unknown]
  - Scoliosis [Unknown]
  - Osteoarthropathy [Unknown]
  - Enostosis [Unknown]

NARRATIVE: CASE EVENT DATE: 20221115
